FAERS Safety Report 13655635 (Version 1)
Quarter: 2017Q2

REPORT INFORMATION
  Report Type: Spontaneous
  Country: US (occurrence: US)
  Receive Date: 20170615
  Receipt Date: 20170615
  Transmission Date: 20170830
  Serious: No
  Sender: FDA-Public Use
  Company Number: US-PFIZER INC-2017259219

PATIENT
  Age: 57 Year
  Sex: Female

DRUGS (1)
  1. XANAX [Suspect]
     Active Substance: ALPRAZOLAM
     Indication: ANXIETY
     Dosage: 4 MG, AS NEEDED (TWO A DAY, DIDN^T TAKE EVERY DAY)
     Route: 048

REACTIONS (1)
  - Drug ineffective [Unknown]
